FAERS Safety Report 24819247 (Version 1)
Quarter: 2025Q1

REPORT INFORMATION
  Report Type: Spontaneous
  Country: US (occurrence: US)
  Receive Date: 20250108
  Receipt Date: 20250108
  Transmission Date: 20250409
  Serious: Yes (Other)
  Sender: MYLAN
  Company Number: US-MYLANLABS-2025M1001928

PATIENT
  Age: 68 Year
  Sex: Female

DRUGS (2)
  1. CLOZAPINE [Suspect]
     Active Substance: CLOZAPINE
     Indication: Bipolar disorder
     Route: 065
  2. CLOZAPINE [Suspect]
     Active Substance: CLOZAPINE
     Route: 065

REACTIONS (3)
  - Intestinal pseudo-obstruction [Recovered/Resolved]
  - Antipsychotic drug level increased [Recovered/Resolved]
  - Off label use [Unknown]
